FAERS Safety Report 7199256-4 (Version None)
Quarter: 2010Q4

REPORT INFORMATION
  Report Type: 
  Country: None (occurrence: None)
  Receive Date: 20101223
  Receipt Date: 20101223
  Transmission Date: 20110411
  Serious: No
  Sender: FDA-Public Use
  Company Number: None

PATIENT
  Age: 28 Year
  Sex: Female
  Weight: 68.0396 kg

DRUGS (1)
  1. SPRINTEC [Suspect]
     Indication: CONTRACEPTION
     Dates: start: 20101123, end: 20101213

REACTIONS (5)
  - BREAST PAIN [None]
  - DEPRESSION [None]
  - HEADACHE [None]
  - NAUSEA [None]
  - NERVOUSNESS [None]
